FAERS Safety Report 5301000-X (Version None)
Quarter: 2007Q2

REPORT INFORMATION
  Report Type: 
  Country: None (occurrence: None)
  Receive Date: 20070418
  Receipt Date: 20070125
  Transmission Date: 20071010
  Serious: No
  Sender: FDA-Public Use
  Company Number: US-AMGEN-US208443

PATIENT
  Sex: Male

DRUGS (19)
  1. SENSIPAR [Suspect]
     Indication: HYPERPARATHYROIDISM SECONDARY
     Route: 065
     Dates: start: 20041101
  2. EPOGEN [Concomitant]
     Indication: RENAL FAILURE CHRONIC
     Route: 065
  3. ASPIRIN [Concomitant]
     Route: 048
  4. COREG [Concomitant]
     Route: 048
  5. COUMADIN [Concomitant]
     Route: 048
  6. FERRLECIT [Concomitant]
     Route: 042
  7. ISORDIL [Concomitant]
     Route: 065
  8. CARNICOR [Concomitant]
     Route: 065
  9. DIGOXIN [Concomitant]
     Route: 048
  10. LIPITOR [Concomitant]
     Route: 048
  11. LISINOPRIL [Concomitant]
     Route: 048
  12. NEXIUM [Concomitant]
     Route: 048
  13. NIASPAN [Concomitant]
     Route: 048
  14. NITROSTAT [Concomitant]
     Route: 060
  15. NORVASC [Concomitant]
     Route: 048
  16. REMERON [Concomitant]
     Route: 048
  17. RENAGEL [Concomitant]
     Route: 048
  18. SYNTHROID [Concomitant]
     Route: 048
  19. APAP TAB [Concomitant]
     Route: 048

REACTIONS (1)
  - DENTAL CARIES [None]
